FAERS Safety Report 16872726 (Version 6)
Quarter: 2020Q2

REPORT INFORMATION
  Report Type: Report from Study
  Country: FR (occurrence: FR)
  Receive Date: 20191001
  Receipt Date: 20200507
  Transmission Date: 20200713
  Serious: Yes (Hospitalization)
  Sender: FDA-Public Use
  Company Number: FR-EISAI MEDICAL RESEARCH-EC-2019-062757

PATIENT
  Age: 63 Year
  Sex: Male
  Weight: 72 kg

DRUGS (16)
  1. LENVATINIB [Suspect]
     Active Substance: LENVATINIB
     Indication: THYROID CANCER
     Route: 048
     Dates: start: 20180704, end: 20181107
  2. AMAREL [Concomitant]
     Active Substance: GLIMEPIRIDE
  3. RAMIPRIL. [Concomitant]
     Active Substance: RAMIPRIL
  4. ALDACTONE [Concomitant]
     Active Substance: SPIRONOLACTONE
  5. LENVATINIB [Suspect]
     Active Substance: LENVATINIB
     Route: 048
     Dates: start: 20190826, end: 20190923
  6. LENVATINIB [Suspect]
     Active Substance: LENVATINIB
     Route: 048
     Dates: start: 20191021
  7. LEVOTHYROX [Concomitant]
     Active Substance: LEVOTHYROXINE
  8. VICTOZA [Concomitant]
     Active Substance: LIRAGLUTIDE
  9. MAGNESIUM VITAMIN B6 [Concomitant]
  10. TOUJEO [Concomitant]
     Active Substance: INSULIN GLARGINE
  11. METFORMIN [Concomitant]
     Active Substance: METFORMIN HYDROCHLORIDE
  12. LENVATINIB [Suspect]
     Active Substance: LENVATINIB
     Route: 048
     Dates: start: 20181122, end: 20190613
  13. INNOHEP [Concomitant]
     Active Substance: TINZAPARIN SODIUM
  14. LENVATINIB [Suspect]
     Active Substance: LENVATINIB
     Route: 048
     Dates: start: 20190614, end: 20190825
  15. CALCIUM VITAMIN D3 [Concomitant]
  16. BISOPROLOL [Concomitant]
     Active Substance: BISOPROLOL

REACTIONS (1)
  - Ejection fraction decreased [Recovered/Resolved]

NARRATIVE: CASE EVENT DATE: 20190705
